FAERS Safety Report 5972770-2 (Version None)
Quarter: 2008Q4

REPORT INFORMATION
  Report Type: 
  Country: None (occurrence: None)
  Receive Date: 20081201
  Receipt Date: 20081124
  Transmission Date: 20090506
  Serious: Yes (Hospitalization)
  Sender: FDA-Public Use
  Company Number: AU-MERCK-0811AUS00207

PATIENT
  Age: 66 Year
  Sex: Female
  Weight: 66 kg

DRUGS (5)
  1. VYTORIN [Suspect]
     Indication: ARTHROPATHY
     Route: 048
     Dates: start: 20080424, end: 20080523
  2. METOPROLOL [Concomitant]
     Route: 065
  3. AMLODIPINE BESYLATE [Concomitant]
     Route: 065
  4. ASPIRIN AND DIPYRIDAMOLE [Concomitant]
     Route: 065
  5. METFORMIN HYDROCHLORIDE [Concomitant]
     Route: 065

REACTIONS (2)
  - HEPATOTOXICITY [None]
  - RHABDOMYOLYSIS [None]
